FAERS Safety Report 10476317 (Version 2)
Quarter: 2014Q4

REPORT INFORMATION
  Report Type: Spontaneous
  Country: CN (occurrence: CN)
  Receive Date: 20140925
  Receipt Date: 20141029
  Transmission Date: 20150528
  Serious: Yes (Other)
  Sender: FDA-Public Use
  Company Number: CN-ASTRAZENECA-2014SE70816

PATIENT
  Sex: Female

DRUGS (2)
  1. ZOLADEX [Suspect]
     Active Substance: GOSERELIN ACETATE
     Indication: HAEMORRHAGIC OVARIAN CYST
     Route: 058
     Dates: start: 201404, end: 20140917
  2. ZOLADEX [Suspect]
     Active Substance: GOSERELIN ACETATE
     Indication: ENDOMETRIOSIS
     Route: 058
     Dates: start: 201404, end: 20140917

REACTIONS (1)
  - Platelet count decreased [Unknown]

NARRATIVE: CASE EVENT DATE: 20140917
